FAERS Safety Report 6250526-3 (Version None)
Quarter: 2009Q2

REPORT INFORMATION
  Report Type: 
  Country: None (occurrence: None)
  Receive Date: 20090630
  Receipt Date: 20090617
  Transmission Date: 20091009
  Serious: No
  Sender: FDA-Public Use
  Company Number: CA-BAYER-200923823NA

PATIENT
  Age: 32 Year
  Sex: Female

DRUGS (2)
  1. YASMIN [Suspect]
     Indication: DRUG USE FOR UNKNOWN INDICATION
     Route: 048
     Dates: start: 20090521
  2. NEXIUM [Concomitant]
     Indication: GASTRIC ULCER

REACTIONS (2)
  - BREAST ENLARGEMENT [None]
  - VASODILATATION [None]
